FAERS Safety Report 5919081-9 (Version None)
Quarter: 2008Q3

REPORT INFORMATION
  Report Type: 
  Country: None (occurrence: None)
  Receive Date: 20080909
  Receipt Date: 20061117
  Transmission Date: 20090109
  Serious: Yes (Hospitalization)
  Sender: FDA-Public Use
  Company Number: 163-20785-06110993

PATIENT
  Age: 54 Year
  Sex: Female
  Weight: 55.7 kg

DRUGS (3)
  1. THALOMID [Suspect]
     Indication: LUNG NEOPLASM MALIGNANT
     Dosage: DAY 1 AT 200 MG WITH A WEEKLY TITRATION OF 100 MG UP TO 1000 MG, QD X21 DAYS, ORAL
     Route: 048
     Dates: start: 20050428, end: 20060826
  2. PACLITAXEL [Suspect]
     Indication: DRUG USE FOR UNKNOWN INDICATION
     Dosage: SEE IMAGE
     Route: 042
     Dates: start: 20050428
  3. CARBOPLATIN [Suspect]
     Indication: DRUG USE FOR UNKNOWN INDICATION
     Dosage: SEE IMAGE
     Route: 042
     Dates: start: 20050428

REACTIONS (3)
  - COUGH [None]
  - DYSPNOEA [None]
  - HYPOXIA [None]
